FAERS Safety Report 11727631 (Version 2)
Quarter: 2016Q2

REPORT INFORMATION
  Report Type: Spontaneous
  Country: US (occurrence: US)
  Receive Date: 20151112
  Receipt Date: 20160504
  Transmission Date: 20160815
  Serious: Yes (Hospitalization, Other)
  Sender: FDA-Public Use
  Company Number: US-MDT-ADR-2015-02139

PATIENT
  Age: 7 Year
  Sex: Female

DRUGS (2)
  1. LIORESAL [Suspect]
     Active Substance: BACLOFEN
     Dosage: 249 MCG/DAY
     Route: 037
  2. LIORESAL [Suspect]
     Active Substance: BACLOFEN
     Dosage: 249 MCG/DAY PROGRAMMED IN ERROR AT 2000 MCG/ML CONCENTRATION
     Route: 037

REACTIONS (4)
  - Drug withdrawal syndrome [Unknown]
  - Muscle spasms [Unknown]
  - Muscle spasticity [Unknown]
  - Incorrect drug administration rate [Unknown]
